FAERS Safety Report 7574010-X (Version None)
Quarter: 2011Q2

REPORT INFORMATION
  Report Type: 
  Country: None (occurrence: None)
  Receive Date: 20110627
  Receipt Date: 20110617
  Transmission Date: 20111010
  Serious: Yes (Hospitalization)
  Sender: FDA-Public Use
  Company Number: US-JNJFOC-20110608923

PATIENT
  Sex: Male
  Weight: 91.17 kg

DRUGS (18)
  1. PLAVIX [Suspect]
     Route: 048
     Dates: end: 20110114
  2. MULTI-VITAMINS [Concomitant]
  3. PLAVIX [Suspect]
     Indication: PRODUCT USED FOR UNKNOWN INDICATION
     Route: 048
  4. FLAXSEED OIL [Concomitant]
  5. FISH OIL [Concomitant]
  6. TENORMIN [Concomitant]
  7. JEVTANA KIT [Suspect]
     Route: 041
     Dates: start: 20110310, end: 20110310
  8. ZOMETA [Concomitant]
  9. IBUPROFEN [Suspect]
     Indication: OSTEOARTHRITIS
     Dates: end: 20110114
  10. JEVTANA KIT [Suspect]
     Route: 041
     Dates: start: 20110101, end: 20110101
  11. CHONDROITIN SULFATE W/GLUCOSAMINE [Concomitant]
  12. ASPIRIN [Suspect]
     Indication: PRODUCT USED FOR UNKNOWN INDICATION
     Route: 065
     Dates: end: 20110114
  13. JEVTANA KIT [Suspect]
     Route: 041
     Dates: start: 20110519, end: 20110519
  14. KEFLEX [Concomitant]
     Dates: start: 20110101, end: 20110101
  15. LUPRON [Concomitant]
     Dates: start: 20101216, end: 20101216
  16. ZOCOR [Concomitant]
  17. JEVTANA KIT [Suspect]
     Indication: PROSTATE CANCER METASTATIC
     Route: 041
     Dates: start: 20110106, end: 20110106
  18. PREDNISONE [Concomitant]

REACTIONS (9)
  - ARRHYTHMIA [None]
  - AGEUSIA [None]
  - ATRIAL FIBRILLATION [None]
  - OEDEMA PERIPHERAL [None]
  - GASTROINTESTINAL HAEMORRHAGE [None]
  - ASTHENIA [None]
  - FATIGUE [None]
  - WEIGHT DECREASED [None]
  - CORONARY ARTERY OCCLUSION [None]
